FAERS Safety Report 7712683-9 (Version None)
Quarter: 2011Q3

REPORT INFORMATION
  Report Type: 
  Country: None (occurrence: None)
  Receive Date: 20110826
  Receipt Date: 20110823
  Transmission Date: 20111222
  Serious: Yes (Hospitalization)
  Sender: FDA-Public Use
  Company Number: AT-BRISTOL-MYERS SQUIBB COMPANY-15993710

PATIENT
  Sex: Female

DRUGS (3)
  1. ABILIFY [Suspect]
  2. AMISULPRIDE [Interacting]
  3. KETOCONAZOLE [Interacting]

REACTIONS (2)
  - HYPERTHERMIA MALIGNANT [None]
  - DRUG INTERACTION [None]
